FAERS Safety Report 5526603-9 (Version None)
Quarter: 2007Q4

REPORT INFORMATION
  Report Type: 
  Country: None (occurrence: None)
  Receive Date: 20071127
  Receipt Date: 20071115
  Transmission Date: 20080405
  Serious: Yes (Hospitalization, Other)
  Sender: FDA-Public Use
  Company Number: US-AMGEN-QUU252876

PATIENT
  Sex: Female

DRUGS (2)
  1. ENBREL [Suspect]
     Indication: RHEUMATOID ARTHRITIS
     Route: 058
     Dates: start: 20031101
  2. PLAQUENIL [Concomitant]
     Route: 048
     Dates: start: 20071001

REACTIONS (4)
  - COUGH [None]
  - GASTRIC BYPASS [None]
  - IRON DEFICIENCY ANAEMIA [None]
  - NASAL CONGESTION [None]
